FAERS Safety Report 6610747-4 (Version None)
Quarter: 2010Q1

REPORT INFORMATION
  Report Type: 
  Country: None (occurrence: None)
  Receive Date: 20100302
  Receipt Date: 20100222
  Transmission Date: 20100710
  Serious: Yes (Hospitalization)
  Sender: FDA-Public Use
  Company Number: B0619970A

PATIENT
  Sex: Male

DRUGS (4)
  1. VALTREX [Suspect]
     Indication: HERPES ZOSTER
     Dosage: 1000MG THREE TIMES PER DAY
     Route: 048
     Dates: start: 20091207, end: 20091209
  2. RANTUDIL [Concomitant]
     Indication: ANALGESIC THERAPY
     Dosage: 90MG PER DAY
     Route: 048
     Dates: start: 20091207, end: 20091209
  3. MECOBALAMIN [Concomitant]
     Dosage: 1500MG PER DAY
     Route: 048
     Dates: start: 20091207, end: 20091209
  4. MUCOSTA [Concomitant]
     Indication: GASTROINTESTINAL DISORDER
     Dosage: 300MG PER DAY
     Route: 048
     Dates: start: 20091207, end: 20091209

REACTIONS (4)
  - ABNORMAL BEHAVIOUR [None]
  - APHASIA [None]
  - DYSPHONIA [None]
  - ENCEPHALOPATHY [None]
